FAERS Safety Report 24540600 (Version 1)
Quarter: 2024Q4

REPORT INFORMATION
  Report Type: Spontaneous
  Country: GR (occurrence: GR)
  Receive Date: 20241023
  Receipt Date: 20241023
  Transmission Date: 20250115
  Serious: Yes (Other)
  Sender: SANDOZ
  Company Number: GR-NOVPHSZ-PHHY2019GR154836

PATIENT
  Age: 51 Year
  Sex: Male

DRUGS (1)
  1. MOXIFLOXACIN [Suspect]
     Active Substance: MOXIFLOXACIN
     Indication: Respiratory tract infection
     Dosage: 400 MG, QD
     Route: 048

REACTIONS (4)
  - Idiopathic intracranial hypertension [Unknown]
  - Vision blurred [Unknown]
  - Eye swelling [Unknown]
  - Headache [Unknown]
